FAERS Safety Report 7547669-0 (Version None)
Quarter: 2011Q2

REPORT INFORMATION
  Report Type: 
  Country: None (occurrence: None)
  Receive Date: 20110614
  Receipt Date: 20110609
  Transmission Date: 20111010
  Serious: Yes (Hospitalization, Other)
  Sender: FDA-Public Use
  Company Number: FR-ABBOTT-11P-056-0731267-00

PATIENT
  Sex: Female

DRUGS (12)
  1. MOTILIUM [Concomitant]
     Indication: PRODUCT USED FOR UNKNOWN INDICATION
     Route: 048
  2. CEFUROXIME SODIUM [Suspect]
     Indication: BRONCHITIS
     Route: 048
     Dates: start: 20110204, end: 20110205
  3. PANCRELASE [Concomitant]
     Indication: PRODUCT USED FOR UNKNOWN INDICATION
     Route: 048
  4. CLARITIN [Suspect]
     Indication: PRODUCT USED FOR UNKNOWN INDICATION
     Route: 048
     Dates: start: 20110223, end: 20110224
  5. IZYLOX [Suspect]
     Indication: BRONCHITIS
     Route: 048
     Dates: start: 20110124, end: 20110130
  6. RAMIPRIL [Concomitant]
     Indication: HYPERTENSION
     Route: 048
     Dates: end: 20110307
  7. FURADANTINE [Concomitant]
     Indication: PRODUCT USED FOR UNKNOWN INDICATION
     Route: 048
     Dates: start: 20110110, end: 20110201
  8. CLARITHROMYCIN [Suspect]
     Indication: BRONCHITIS
     Route: 048
     Dates: start: 20110131, end: 20110204
  9. REPAGLINIDE [Concomitant]
     Indication: DIABETES MELLITUS
     Route: 048
  10. UMULINE [Concomitant]
     Indication: DIABETES MELLITUS
     Route: 058
  11. ATARAX [Suspect]
     Indication: ANXIETY
     Route: 048
     Dates: start: 20110223, end: 20110224
  12. HUMALOG [Concomitant]
     Indication: DIABETES MELLITUS
     Route: 058

REACTIONS (11)
  - DRUG HYPERSENSITIVITY [None]
  - LEUKOCYTOCLASTIC VASCULITIS [None]
  - EOSINOPHILIA [None]
  - GASTRIC STENOSIS [None]
  - OESOPHAGEAL STENOSIS [None]
  - PURPURA [None]
  - URTICARIA [None]
  - LARYNGEAL DISORDER [None]
  - ANXIETY [None]
  - RASH [None]
  - PRURIGO [None]
